FAERS Safety Report 12956430 (Version 2)
Quarter: 2016Q4

REPORT INFORMATION
  Report Type: Spontaneous
  Country: GB (occurrence: GB)
  Receive Date: 20161118
  Receipt Date: 20161208
  Transmission Date: 20170207
  Serious: Yes (Life-Threatening, Hospitalization, Disabling)
  Sender: FDA-Public Use
  Company Number: GB-PFIZER INC-2016530217

PATIENT
  Age: 20 Year
  Sex: Female
  Weight: 44.45 kg

DRUGS (1)
  1. SULFASALAZINE. [Suspect]
     Active Substance: SULFASALAZINE
     Indication: EPIGASTRIC DISCOMFORT
     Dosage: 3 G, UNK
     Route: 048
     Dates: start: 198504, end: 198510

REACTIONS (3)
  - Fixed drug eruption [Recovered/Resolved with Sequelae]
  - Psychotic disorder [Recovered/Resolved with Sequelae]
  - Nightmare [Recovered/Resolved with Sequelae]
